FAERS Safety Report 4416346-7 (Version None)
Quarter: 2004Q3

REPORT INFORMATION
  Report Type: 
  Country: None (occurrence: None)
  Receive Date: 20040805
  Receipt Date: 20040726
  Transmission Date: 20050211
  Serious: Yes (Hospitalization)
  Sender: FDA-Public Use
  Company Number: DE-ROCHE-375440

PATIENT
  Age: 39 Year
  Sex: Male
  Weight: 80.9 kg

DRUGS (14)
  1. DACLIZUMAB [Suspect]
     Route: 042
     Dates: start: 20040602, end: 20040602
  2. DACLIZUMAB [Suspect]
     Route: 042
     Dates: end: 20040714
  3. MYCOPHENOLATE MOFETIL [Suspect]
     Route: 048
     Dates: start: 20040602
  4. CYCLOSPORINE [Suspect]
     Dosage: DOSE: 50  - 0 - 100MG
     Route: 048
     Dates: start: 20040602
  5. DECORTIN H [Suspect]
     Route: 048
  6. DILTIAZEM HCL [Concomitant]
     Route: 048
     Dates: start: 20040602
  7. PANTOZOL [Concomitant]
     Route: 048
     Dates: start: 20040602
  8. CEFRIL [Concomitant]
     Route: 048
     Dates: start: 20040602
  9. NATRON [Concomitant]
     Route: 048
     Dates: start: 20040602
  10. L-THYROXIN 150 [Concomitant]
     Route: 048
     Dates: start: 20040602
  11. CA ACETAT [Concomitant]
     Route: 048
     Dates: start: 20040602
  12. NEBILET [Concomitant]
     Route: 048
     Dates: start: 20040602
  13. TORSEMIDE [Concomitant]
     Route: 048
     Dates: start: 20040602
  14. AQUAPHOR [Concomitant]
     Route: 048
     Dates: start: 20040602

REACTIONS (1)
  - CYTOMEGALOVIRUS INFECTION [None]
